FAERS Safety Report 5650699-7 (Version None)
Quarter: 2008Q1

REPORT INFORMATION
  Report Type: 
  Country: None (occurrence: None)
  Receive Date: 20080305
  Receipt Date: 20080305
  Transmission Date: 20080703
  Serious: Yes (Hospitalization)
  Sender: FDA-Public Use
  Company Number: None

PATIENT
  Age: 62 Year
  Sex: Female
  Weight: 77.1115 kg

DRUGS (2)
  1. HEPARIN LOCK-FLUSH [Suspect]
     Indication: OSTEOMYELITIS
     Dosage: 5ML DAILY/BID IV
     Route: 042
     Dates: start: 20070925, end: 20071127
  2. SODIUM CHLORIDE [Suspect]
     Dosage: 10ML DAILY/BID IV
     Route: 042

REACTIONS (5)
  - BLOOD CULTURE POSITIVE [None]
  - CATHETER RELATED INFECTION [None]
  - CONFUSIONAL STATE [None]
  - DELIRIUM [None]
  - SERRATIA INFECTION [None]
